FAERS Safety Report 5764063-3 (Version None)
Quarter: 2008Q2

REPORT INFORMATION
  Report Type: 
  Country: None (occurrence: None)
  Receive Date: 20080606
  Receipt Date: 20080606
  Transmission Date: 20081010
  Serious: Yes (Life-Threatening, Disabling)
  Sender: FDA-Public Use
  Company Number: None

PATIENT
  Sex: Female
  Weight: 54.4316 kg

DRUGS (1)
  1. DIGITEK, 125 MCG, BERTEK [Suspect]
     Indication: CARDIAC DISORDER
     Dosage: 125 MCG DAILY ORAL
     Route: 048
     Dates: start: 20080228, end: 20080320

REACTIONS (3)
  - EYE DISORDER [None]
  - MULTI-ORGAN DISORDER [None]
  - PHARMACEUTICAL PRODUCT COMPLAINT [None]
